FAERS Safety Report 5500023-5 (Version None)
Quarter: 2007Q4

REPORT INFORMATION
  Report Type: 
  Country: None (occurrence: None)
  Receive Date: 20071026
  Receipt Date: 20071019
  Transmission Date: 20080405
  Serious: Yes (Hospitalization)
  Sender: FDA-Public Use
  Company Number: CA-MERCK-0602CAN00151

PATIENT
  Age: 49 Year
  Sex: Male
  Weight: 97 kg

DRUGS (3)
  1. COZAAR [Suspect]
     Indication: HYPERTENSION
     Route: 048
     Dates: start: 20051017, end: 20060222
  2. COZAAR [Suspect]
     Route: 048
     Dates: start: 20060228
  3. BISOPROLOL [Concomitant]
     Route: 065

REACTIONS (9)
  - ATRIAL FLUTTER [None]
  - BLOOD GLUCOSE ABNORMAL [None]
  - LEFT VENTRICULAR HYPERTROPHY [None]
  - LIVER FUNCTION TEST ABNORMAL [None]
  - MITRAL VALVE INCOMPETENCE [None]
  - NON-CARDIAC CHEST PAIN [None]
  - PALPITATIONS [None]
  - PLATELET COUNT INCREASED [None]
  - PRESYNCOPE [None]
